FAERS Safety Report 9096854 (Version 1)
Quarter: 2013Q1

REPORT INFORMATION
  Report Type: Spontaneous
  Country: ES (occurrence: ES)
  Receive Date: 20130211
  Receipt Date: 20130211
  Transmission Date: 20140127
  Serious: Yes (Other)
  Sender: FDA-Public Use
  Company Number: PHHY2013ES012238

PATIENT
  Age: 68 Year
  Sex: Female

DRUGS (5)
  1. TRILEPTAL [Suspect]
     Indication: MAJOR DEPRESSION
     Dosage: 600 MG, BID
     Route: 048
     Dates: start: 20120621, end: 20120704
  2. CYMBALTA [Suspect]
     Indication: MAJOR DEPRESSION
     Dosage: 120 MG, BID
     Route: 048
     Dates: start: 20120509, end: 20120704
  3. SEROQUEL [Suspect]
     Indication: MAJOR DEPRESSION
     Dosage: 200 MG, QD
     Dates: start: 20120509, end: 20120704
  4. STILNOX [Concomitant]
     Indication: INSOMNIA
     Dosage: UNK UKN, QD
     Route: 048
     Dates: start: 20120509, end: 20120708
  5. TRANXILIUM [Concomitant]
     Indication: ANXIETY
     Dosage: 15 MG, TID
     Route: 048
     Dates: start: 20120509, end: 20120708

REACTIONS (1)
  - Inappropriate antidiuretic hormone secretion [Recovered/Resolved]
